FAERS Safety Report 5297760-7 (Version None)
Quarter: 2007Q2

REPORT INFORMATION
  Report Type: 
  Country: None (occurrence: None)
  Receive Date: 20070412
  Receipt Date: 20070412
  Transmission Date: 20071010
  Serious: Yes (Other)
  Sender: FDA-Public Use
  Company Number: None

PATIENT
  Sex: Male

DRUGS (9)
  1. REVLIMID [Suspect]
     Indication: MULTIPLE MYELOMA
     Dosage: 20MG DAILY 21D/28D PO
     Route: 048
  2. ASPIRIN [Concomitant]
  3. DEXAMETHASONE 0.5MG TAB [Concomitant]
  4. NITROGLYCERIN [Concomitant]
  5. TERAZOSIN HCL [Concomitant]
  6. GLIPIZIDE [Concomitant]
  7. FERROUS SULFATE [Concomitant]
  8. LOVASTATIN [Concomitant]
  9. FLOVENT [Concomitant]

REACTIONS (3)
  - AUTONOMIC NERVOUS SYSTEM IMBALANCE [None]
  - DIABETES MELLITUS [None]
  - HYPOTENSION [None]
